FAERS Safety Report 4634775-3 (Version None)
Quarter: 2005Q3

REPORT INFORMATION
  Report Type: 
  Country: None (occurrence: None)
  Receive Date: 20050412
  Receipt Date: 20050405
  Transmission Date: 20060218
  Serious: Yes (Hospitalization)
  Sender: FDA-Public Use
  Company Number: 9775

PATIENT
  Age: 68 Year
  Sex: Male

DRUGS (2)
  1. SOLARAZE GEL 50 GM [Suspect]
     Indication: ACTINIC KERATOSIS
     Dosage: TOPICAL APPLICATION BID
     Dates: start: 20050322
  2. THERAFLU COLD MEDICINE [Suspect]
     Indication: NASOPHARYNGITIS

REACTIONS (6)
  - ATRIAL FLUTTER [None]
  - DEHYDRATION [None]
  - LEUKOPENIA [None]
  - LOSS OF CONSCIOUSNESS [None]
  - NASOPHARYNGITIS [None]
  - SYNCOPE [None]
